FAERS Safety Report 6016881-4 (Version None)
Quarter: 2008Q4

REPORT INFORMATION
  Report Type: 
  Country: None (occurrence: None)
  Receive Date: 20081219
  Receipt Date: 20081210
  Transmission Date: 20090506
  Serious: Yes (Life-Threatening, Other)
  Sender: FDA-Public Use
  Company Number: PHHY2008JP31640

PATIENT
  Age: 67 Year
  Sex: Male

DRUGS (5)
  1. VISUDYNE [Suspect]
     Indication: MACULAR DEGENERATION
     Dates: start: 20081112, end: 20081112
  2. NU-LOTAN [Concomitant]
  3. ASPIRIN [Concomitant]
  4. FLIVAS [Concomitant]
  5. VASOMET [Concomitant]

REACTIONS (1)
  - ANAPHYLACTIC REACTION [None]
